FAERS Safety Report 23836150 (Version 1)
Quarter: 2024Q2

REPORT INFORMATION
  Report Type: Spontaneous
  Country: US (occurrence: None)
  Receive Date: 20240507
  Receipt Date: 20240507
  Transmission Date: 20240715
  Serious: No
  Sender: FDA-Public Use
  Company Number: None

PATIENT
  Age: 69 Year
  Sex: Female
  Weight: 79.38 kg

DRUGS (7)
  1. STRIVERDI RESPIMAT [Suspect]
     Active Substance: OLODATEROL HYDROCHLORIDE
     Indication: Chronic obstructive pulmonary disease
     Dosage: OTHER QUANTITY : 2 PUFFS;?FREQUENCY : DAILY;?
     Route: 055
     Dates: start: 202311, end: 202403
  2. SYNTHROID [Concomitant]
     Active Substance: LEVOTHYROXINE SODIUM
  3. ALBUTEROL [Concomitant]
     Active Substance: ALBUTEROL
  4. CITRACAL D+ [Concomitant]
  5. ONE-A-DAY NOS [Concomitant]
     Active Substance: MINERALS\VITAMINS
  6. CHOLESTOFF [Concomitant]
  7. SCHIFF MOVE FREE [Concomitant]
     Active Substance: DIETARY SUPPLEMENT

REACTIONS (3)
  - Vision blurred [None]
  - Blepharitis [None]
  - Eye pruritus [None]

NARRATIVE: CASE EVENT DATE: 20240107
